FAERS Safety Report 4965493-X (Version None)
Quarter: 2006Q1

REPORT INFORMATION
  Report Type: 
  Country: None (occurrence: None)
  Receive Date: 20060201
  Receipt Date: 20051227
  Transmission Date: 20060701
  Serious: No
  Sender: FDA-Public Use
  Company Number: 2005PV006322

PATIENT
  Age: 63 Year
  Sex: Male
  Weight: 112.0385 kg

DRUGS (3)
  1. BYETTA [Suspect]
     Indication: DIABETES MELLITUS NON-INSULIN-DEPENDENT
     Dosage: 6 MCG BID SC
     Route: 058
     Dates: start: 20050913
  2. PRANDIN [Concomitant]
  3. AVANDIA [Concomitant]

REACTIONS (5)
  - BLOOD GLUCOSE INCREASED [None]
  - DECREASED APPETITE [None]
  - DYSGEUSIA [None]
  - NAUSEA [None]
  - WEIGHT DECREASED [None]
